FAERS Safety Report 8353432-3 (Version None)
Quarter: 2012Q2

REPORT INFORMATION
  Report Type: 
  Country: None (occurrence: None)
  Receive Date: 20120511
  Receipt Date: 20110513
  Transmission Date: 20120825
  Serious: No
  Sender: FDA-Public Use
  Company Number: US-GLAXOSMITHKLINE-A0906192A

PATIENT
  Age: 75 Year
  Sex: Female
  Weight: 76.4 kg

DRUGS (7)
  1. VITAMIN D [Concomitant]
  2. CALTRATE + D [Concomitant]
  3. TYKERB [Suspect]
     Indication: BREAST CANCER
     Dosage: 1250MG PER DAY
     Route: 048
     Dates: start: 20110107
  4. DIOVAN [Concomitant]
  5. ANASTROZOLE [Concomitant]
  6. OMEPRAZOLE [Concomitant]
  7. MULTI-VITAMINS [Concomitant]

REACTIONS (1)
  - DIARRHOEA [None]
